FAERS Safety Report 17873737 (Version 3)
Quarter: 2020Q3

REPORT INFORMATION
  Report Type: Report from Study
  Country: US (occurrence: US)
  Receive Date: 20200609
  Receipt Date: 20200817
  Transmission Date: 20201103
  Serious: Yes (Other)
  Sender: FDA-Public Use
  Company Number: US-BEH-2020118145

PATIENT
  Age: 70 Year
  Sex: Female
  Weight: 75.74 kg

DRUGS (6)
  1. HIZENTRA [Suspect]
     Active Substance: HUMAN IMMUNOGLOBULIN G
     Indication: HYPOGAMMAGLOBULINAEMIA
     Dosage: 17 GRAM, QW
     Route: 058
     Dates: start: 20200522
  2. HIZENTRA [Suspect]
     Active Substance: HUMAN IMMUNOGLOBULIN G
     Dosage: UNK
     Route: 058
     Dates: start: 20200522
  3. HIZENTRA [Suspect]
     Active Substance: HUMAN IMMUNOGLOBULIN G
     Dosage: UNK
     Route: 058
     Dates: start: 20200528, end: 20200528
  4. HIZENTRA [Suspect]
     Active Substance: HUMAN IMMUNOGLOBULIN G
     Dosage: 17 GRAM, 97 DAYS
     Route: 065
     Dates: end: 20200621
  5. HIZENTRA [Suspect]
     Active Substance: HUMAN IMMUNOGLOBULIN G
     Dosage: UNK
     Route: 058
     Dates: start: 20200522
  6. HIZENTRA [Suspect]
     Active Substance: HUMAN IMMUNOGLOBULIN G
     Dosage: UNK
     Route: 065

REACTIONS (12)
  - Pyrexia [Recovered/Resolved]
  - Infusion site erythema [Unknown]
  - Infusion site pain [Unknown]
  - Disorientation [Recovered/Resolved]
  - Infusion site swelling [Unknown]
  - Infusion site warmth [Unknown]
  - Infusion site pain [Recovered/Resolved]
  - Liver function test increased [Recovering/Resolving]
  - Chills [Recovered/Resolved]
  - Pyrexia [Unknown]
  - Chills [Unknown]
  - Bile duct stone [Recovering/Resolving]

NARRATIVE: CASE EVENT DATE: 20200522
